FAERS Safety Report 16165813 (Version 2)
Quarter: 2020Q1

REPORT INFORMATION
  Report Type: Report from Study
  Country: US (occurrence: US)
  Receive Date: 20190406
  Receipt Date: 20200125
  Transmission Date: 20200409
  Serious: Yes (Other)
  Sender: FDA-Public Use
  Company Number: US-ROCHE-2294913

PATIENT
  Sex: Female

DRUGS (1)
  1. OCREVUS [Suspect]
     Active Substance: OCRELIZUMAB
     Indication: PRIMARY PROGRESSIVE MULTIPLE SCLEROSIS
     Dosage: DATE OF TREATMENT: 20/SEP/2018, 20/MAR/2019 AND 18/JUN/2019.
     Route: 065
     Dates: start: 20180906

REACTIONS (2)
  - Cystitis [Not Recovered/Not Resolved]
  - Off label use [Unknown]
